FAERS Safety Report 4860379-3 (Version None)
Quarter: 2005Q4

REPORT INFORMATION
  Report Type: 
  Country: None (occurrence: None)
  Receive Date: 20051219
  Receipt Date: 20051209
  Transmission Date: 20060501
  Serious: Yes (Other)
  Sender: FDA-Public Use
  Company Number: CA-BRISTOL-MYERS SQUIBB COMPANY-13218961

PATIENT
  Age: 86 Year
  Sex: Female

DRUGS (16)
  1. TEQUIN [Suspect]
     Route: 048
  2. ASPIRIN [Concomitant]
     Route: 048
  3. ALLOPURINOL [Concomitant]
     Route: 048
  4. COUMADIN [Concomitant]
     Route: 048
  5. DIDROCAL [Concomitant]
  6. FERROUS FUMARATE [Concomitant]
     Route: 048
  7. FLOVENT [Concomitant]
  8. IMOVANE [Concomitant]
     Route: 048
  9. K-DUR 10 [Concomitant]
  10. LOSEC [Concomitant]
     Route: 048
  11. PREMARIN [Concomitant]
     Route: 048
  12. PROVERA [Concomitant]
     Route: 048
  13. QUININE [Concomitant]
     Route: 048
  14. SEREVENT [Concomitant]
  15. VENTOLIN [Concomitant]
  16. ZAROXOLYN [Concomitant]
     Route: 048

REACTIONS (1)
  - HYPERGLYCAEMIA [None]
